FAERS Safety Report 24218265 (Version 1)
Quarter: 2024Q3

REPORT INFORMATION
  Report Type: Report from Study
  Country: CA (occurrence: CA)
  Receive Date: 20240816
  Receipt Date: 20240816
  Transmission Date: 20241016
  Serious: Yes (Other)
  Sender: ABBVIE
  Company Number: CA-ABBVIE-5880716

PATIENT
  Sex: Female

DRUGS (1)
  1. RINVOQ [Suspect]
     Active Substance: UPADACITINIB
     Indication: Psoriatic arthropathy
     Route: 048
     Dates: start: 20230329, end: 20240809

REACTIONS (5)
  - Skin cancer [Unknown]
  - Ankle fracture [Unknown]
  - Fall [Unknown]
  - Surgery [Unknown]
  - Scar [Unknown]
